FAERS Safety Report 10692760 (Version 1)
Quarter: 2015Q1

REPORT INFORMATION
  Report Type: Spontaneous
  Country: US (occurrence: US)
  Receive Date: 20150106
  Receipt Date: 20150106
  Transmission Date: 20150720
  Serious: No
  Sender: FDA-Public Use
  Company Number: US-BRISTOL-MYERS SQUIBB COMPANY-BMS-2014-002551

PATIENT
  Sex: Male
  Weight: 98 kg

DRUGS (6)
  1. SYMLIN [Suspect]
     Active Substance: PRAMLINTIDE ACETATE
     Indication: TYPE 1 DIABETES MELLITUS
     Dosage: 30 ?G, TID
     Route: 058
  2. BUMETANIDE. [Concomitant]
     Active Substance: BUMETANIDE
  3. BABY ASPIRIN [Concomitant]
     Active Substance: ASPIRIN
  4. COREG [Concomitant]
     Active Substance: CARVEDILOL
  5. NOVOLOG [Concomitant]
     Active Substance: INSULIN ASPART
  6. CRESTOR [Concomitant]
     Active Substance: ROSUVASTATIN CALCIUM

REACTIONS (2)
  - Nasopharyngitis [Unknown]
  - Hypotension [Recovered/Resolved]
